FAERS Safety Report 21838852 (Version 2)
Quarter: 2023Q2

REPORT INFORMATION
  Report Type: Report from Study
  Country: AU (occurrence: AU)
  Receive Date: 20230109
  Receipt Date: 20230405
  Transmission Date: 20230722
  Serious: Yes (Other)
  Sender: FDA-Public Use
  Company Number: AU-002147023-NVSC2023AU004051

PATIENT
  Sex: Female

DRUGS (1)
  1. COSENTYX [Suspect]
     Active Substance: SECUKINUMAB
     Indication: Psoriatic arthropathy
     Dosage: UNK
     Route: 058
     Dates: start: 20191231

REACTIONS (6)
  - Macular degeneration [Unknown]
  - Balance disorder [Unknown]
  - Exercise tolerance decreased [Unknown]
  - Fall [Unknown]
  - Arthritis [Unknown]
  - Back disorder [Unknown]
